FAERS Safety Report 23505992 (Version 1)
Quarter: 2024Q1

REPORT INFORMATION
  Report Type: Spontaneous
  Country: US (occurrence: None)
  Receive Date: 20240208
  Receipt Date: 20240208
  Transmission Date: 20240409
  Serious: Yes (Other)
  Sender: FDA-Public Use
  Company Number: None

PATIENT
  Age: 21 Year
  Sex: Female
  Weight: 157.5 kg

DRUGS (7)
  1. QELBREE [Suspect]
     Active Substance: VILOXAZINE HYDROCHLORIDE
     Indication: Attention deficit hyperactivity disorder
     Dosage: OTHER QUANTITY : 1 CAPSULE(S);?
     Route: 048
     Dates: start: 20240131, end: 20240203
  2. INSULIN NOS [Concomitant]
     Active Substance: INSULIN NOS
  3. INSULIN LISPRO [Concomitant]
     Active Substance: INSULIN LISPRO
  4. INSULIN NOS [Concomitant]
     Active Substance: INSULIN NOS
  5. LANTUS [Concomitant]
  6. Dexcom [Concomitant]
  7. g7 [Concomitant]

REACTIONS (2)
  - Blood glucose decreased [None]
  - Hypoglycaemia [None]

NARRATIVE: CASE EVENT DATE: 20240202
